FAERS Safety Report 6032579-0 (Version None)
Quarter: 2009Q1

REPORT INFORMATION
  Report Type: 
  Country: None (occurrence: None)
  Receive Date: 20090109
  Receipt Date: 20090107
  Transmission Date: 20090719
  Serious: Yes (Hospitalization)
  Sender: FDA-Public Use
  Company Number: US-ASTRAZENECA-2009UW00516

PATIENT
  Age: 31 Year
  Sex: Female

DRUGS (2)
  1. PULMICORT RESPULES [Suspect]
     Route: 055
  2. SYMBICORT [Suspect]
     Route: 055

REACTIONS (1)
  - ILL-DEFINED DISORDER [None]
